FAERS Safety Report 15255434 (Version 3)
Quarter: 2018Q3

REPORT INFORMATION
  Report Type: Spontaneous
  Country: ES (occurrence: ES)
  Receive Date: 20180808
  Receipt Date: 20180913
  Transmission Date: 20181010
  Serious: Yes (Hospitalization)
  Sender: FDA-Public Use
  Company Number: ES-SA-2018SA201834

PATIENT
  Sex: Male

DRUGS (2)
  1. LANTUS [Suspect]
     Active Substance: INSULIN GLARGINE
     Indication: TYPE 2 DIABETES MELLITUS
     Dosage: UNK UNK, UNK
     Route: 058
  2. PARACETAMOL [Concomitant]
     Active Substance: ACETAMINOPHEN
     Indication: HEAD DISCOMFORT

REACTIONS (7)
  - Head discomfort [Recovered/Resolved]
  - Gait disturbance [Not Recovered/Not Resolved]
  - Hyperglycaemia [Recovered/Resolved]
  - Visual impairment [Unknown]
  - Cerebrovascular accident [Recovering/Resolving]
  - Hypoglycaemia [Recovered/Resolved]
  - Mobility decreased [Not Recovered/Not Resolved]
